FAERS Safety Report 9938484 (Version 2)
Quarter: 2014Q1

REPORT INFORMATION
  Report Type: Report from Study
  Country: US (occurrence: US)
  Receive Date: 20140303
  Receipt Date: 20140303
  Transmission Date: 20141002
  Serious: No
  Sender: FDA-Public Use
  Company Number: US-ABBVIE-12P-163-1007964-00

PATIENT
  Age: 66 Year
  Sex: Male

DRUGS (10)
  1. HUMIRA [Suspect]
     Indication: PSORIATIC ARTHROPATHY
     Dates: start: 201003, end: 20120425
  2. HUMIRA [Suspect]
     Indication: PSORIASIS
     Dates: start: 20120604
  3. CELEBREX [Concomitant]
     Indication: PRODUCT USED FOR UNKNOWN INDICATION
     Dosage: 200MG DAILY
  4. ASPIRIN [Concomitant]
     Indication: PRODUCT USED FOR UNKNOWN INDICATION
     Dosage: 81MG DAILY
  5. VYTORIN [Concomitant]
     Indication: PRODUCT USED FOR UNKNOWN INDICATION
     Dosage: 1 TABLET DAILY
  6. FEXOFENADINE [Concomitant]
     Indication: HYPERSENSITIVITY
     Dosage: 1 TABLET DAILY
  7. SINGULAIR [Concomitant]
     Indication: HYPERSENSITIVITY
  8. RAMIPRIL [Concomitant]
     Indication: CARDIOVASCULAR EVENT PROPHYLAXIS
  9. FOLTX [Concomitant]
     Indication: CARDIOVASCULAR EVENT PROPHYLAXIS
     Dosage: 1 TABLET DAILY
  10. BISOPR/HCTZ [Concomitant]
     Indication: DIURETIC THERAPY

REACTIONS (4)
  - Renal cyst [Recovered/Resolved]
  - Pancreatic cyst [Recovered/Resolved]
  - Back pain [Recovered/Resolved]
  - Infection [Recovered/Resolved]
